FAERS Safety Report 4964262-4 (Version None)
Quarter: 2006Q1

REPORT INFORMATION
  Report Type: 
  Country: None (occurrence: None)
  Receive Date: 20060331
  Receipt Date: 20060314
  Transmission Date: 20060701
  Serious: Yes (Hospitalization)
  Sender: FDA-Public Use
  Company Number: US200603003963

PATIENT
  Sex: Female

DRUGS (2)
  1. FORTEO (TERIPARATIDE)  PEN, DISPOSALBE [Suspect]
     Dates: start: 20050801
  2. FORTEO [Concomitant]

REACTIONS (5)
  - COLITIS ULCERATIVE [None]
  - INTESTINAL HAEMORRHAGE [None]
  - LETHARGY [None]
  - OVERDOSE [None]
  - PHARMACEUTICAL PRODUCT COMPLAINT [None]
